FAERS Safety Report 4621934-9 (Version None)
Quarter: 2005Q1

REPORT INFORMATION
  Report Type: 
  Country: None (occurrence: None)
  Receive Date: 20050329
  Receipt Date: 20050323
  Transmission Date: 20050727
  Serious: Yes (Hospitalization)
  Sender: FDA-Public Use
  Company Number: US-BRISTOL-MYERS SQUIBB COMPANY-12908679

PATIENT

DRUGS (7)
  1. TRAZODONE HCL [Suspect]
  2. PROLIXIN [Interacting]
  3. WELLBUTRIN SR [Interacting]
  4. LITHIUM [Interacting]
     Route: 048
  5. BENZTROPINE MESYLATE [Interacting]
  6. CLONAZEPAM [Interacting]
  7. QUETIAPINE FUMARATE [Interacting]

REACTIONS (1)
  - DRUG INTERACTION [None]
